FAERS Safety Report 13641301 (Version 1)
Quarter: 2017Q2

REPORT INFORMATION
  Report Type: Spontaneous
  Country: US (occurrence: US)
  Receive Date: 20170609
  Receipt Date: 20170609
  Transmission Date: 20170830
  Serious: Yes (Hospitalization)
  Sender: FDA-Public Use
  Company Number: None

PATIENT
  Age: 45 Year
  Sex: Female
  Weight: 80 kg

DRUGS (2)
  1. GAMMAPLEX [Suspect]
     Active Substance: HUMAN IMMUNOGLOBULIN G
     Indication: STIFF PERSON SYNDROME
     Dosage: ?          OTHER FREQUENCY:3 WEEKS;?
     Route: 042
     Dates: start: 20170519, end: 20170520
  2. NORMAL SALINE FOR INFUSION [Concomitant]

REACTIONS (4)
  - Chills [None]
  - Pyrexia [None]
  - Nuchal rigidity [None]
  - Meningitis aseptic [None]

NARRATIVE: CASE EVENT DATE: 20170522
